FAERS Safety Report 19946905 (Version 1)
Quarter: 2021Q4

REPORT INFORMATION
  Report Type: Spontaneous
  Country: US (occurrence: US)
  Receive Date: 20211012
  Receipt Date: 20211012
  Transmission Date: 20220303
  Serious: Yes (Life-Threatening, Hospitalization)
  Sender: FDA-Public Use
  Company Number: US-LUPIN PHARMACEUTICALS INC.-2021-19330

PATIENT
  Age: 5 Year
  Sex: Female
  Weight: 21.8 kg

DRUGS (18)
  1. METHYLPREDNISOLONE [Suspect]
     Active Substance: METHYLPREDNISOLONE
     Indication: Encephalitis autoimmune
     Dosage: 25 MILLIGRAM/KILOGRAM, BID (IN DIVIDED DOSES TWICE DAILY)
     Route: 042
  2. HUMAN IMMUNOGLOBULIN G [Suspect]
     Active Substance: HUMAN IMMUNOGLOBULIN G
     Indication: Encephalitis autoimmune
     Dosage: 500 MILLIGRAM/KILOGRAM, QD
     Route: 042
  3. RITUXIMAB [Suspect]
     Active Substance: RITUXIMAB
     Indication: Encephalitis autoimmune
     Dosage: 375 MILLIGRAM/SQ. METER (320MG ONCE IN A WEEK)
     Route: 042
  4. RITUXIMAB [Suspect]
     Active Substance: RITUXIMAB
     Dosage: 6 DOSAGE FORM (THERAPY EXTENDED)
     Route: 042
  5. CYCLOPHOSPHAMIDE [Suspect]
     Active Substance: CYCLOPHOSPHAMIDE
     Indication: Encephalitis autoimmune
     Dosage: 750 MILLIGRAM/SQ. METER (640MG, SINGLE DOSE)
     Route: 042
  6. BORTEZOMIB [Concomitant]
     Active Substance: BORTEZOMIB
     Indication: Encephalitis autoimmune
     Dosage: 1.3 MILLIGRAM/SQ. METER (ON DAY 1, 4, 8 AND 11 ON 21 DAY CYCLE)
     Route: 042
  7. BORTEZOMIB [Concomitant]
     Active Substance: BORTEZOMIB
     Dosage: 1.3 MILLIGRAM/SQ. METER (6TH CYCLE)
     Route: 058
  8. FLUCONAZOLE [Interacting]
     Active Substance: FLUCONAZOLE
     Indication: Antifungal prophylaxis
     Dosage: UNK
     Route: 065
  9. ERYTHROMYCIN [Interacting]
     Active Substance: ERYTHROMYCIN
     Indication: Gastrointestinal motility disorder
     Dosage: UNK
     Route: 065
  10. FENTANYL [Concomitant]
     Active Substance: FENTANYL
     Indication: Prophylaxis
     Dosage: UNK
     Route: 065
  11. DEXMEDETOMIDINE [Concomitant]
     Active Substance: DEXMEDETOMIDINE
     Indication: Prophylaxis
     Dosage: UNK
     Route: 065
  12. CISATRACURIUM [Concomitant]
     Active Substance: CISATRACURIUM
     Indication: Prophylaxis
     Dosage: UNK
     Route: 065
  13. METHADONE [Concomitant]
     Active Substance: METHADONE HYDROCHLORIDE
     Indication: Product used for unknown indication
     Dosage: UNK
     Route: 065
  14. LORAZEPAM [Concomitant]
     Active Substance: LORAZEPAM
     Indication: Sedative therapy
     Dosage: UNK
     Route: 065
  15. CLONIDINE [Concomitant]
     Active Substance: CLONIDINE
     Indication: Product used for unknown indication
     Dosage: UNK
     Route: 065
  16. DIAZEPAM [Concomitant]
     Active Substance: DIAZEPAM
     Indication: Sedative therapy
     Dosage: UNK
     Route: 065
  17. DEXAMETHASONE [Concomitant]
     Active Substance: DEXAMETHASONE
     Indication: Encephalitis autoimmune
     Dosage: 10 MILLIGRAM/SQ. METER, QD
     Route: 042
  18. PREDNISONE [Concomitant]
     Active Substance: PREDNISONE
     Indication: Encephalitis autoimmune
     Dosage: ON DAYS 2, 3, 4, 6 THROUGH 10, AND 12 THROUGH 21 OF EACH CYCLE
     Route: 065

REACTIONS (2)
  - Drug ineffective [Unknown]
  - Drug ineffective for unapproved indication [None]
